FAERS Safety Report 25932956 (Version 1)
Quarter: 2025Q4

REPORT INFORMATION
  Report Type: Spontaneous
  Country: CN (occurrence: CN)
  Receive Date: 20251017
  Receipt Date: 20251017
  Transmission Date: 20260118
  Serious: Yes (Life-Threatening)
  Sender: ACCORD
  Company Number: CN-Accord-508384

PATIENT
  Sex: Female

DRUGS (25)
  1. FULVESTRANT [Suspect]
     Active Substance: FULVESTRANT
     Indication: Hormone receptor positive breast cancer
     Dates: start: 202112, end: 202404
  2. CAPECITABINE [Suspect]
     Active Substance: CAPECITABINE
     Indication: Hormone receptor positive breast cancer
     Dosage: MAINTENANCE THERAPY
     Dates: start: 202112, end: 202404
  3. CARBOPLATIN [Suspect]
     Active Substance: CARBOPLATIN
     Indication: Hormone receptor positive breast cancer
     Dosage: 6 CYCLES
     Dates: start: 202112, end: 202404
  4. PACLITAXEL [Suspect]
     Active Substance: PACLITAXEL
     Indication: Hormone receptor positive breast cancer
     Dosage: 6 CYCLES, ALBUMIN BOUND
     Dates: start: 202112, end: 202404
  5. EXEMESTANE [Suspect]
     Active Substance: EXEMESTANE
     Indication: Hormone receptor positive breast cancer
     Dates: start: 202112, end: 202404
  6. GOSERELIN [Suspect]
     Active Substance: GOSERELIN
     Indication: Hormone receptor positive breast cancer
     Dates: start: 202112, end: 202404
  7. GOSERELIN [Suspect]
     Active Substance: GOSERELIN
     Indication: HER2 positive breast cancer
     Dates: start: 202112, end: 202404
  8. GOSERELIN [Suspect]
     Active Substance: GOSERELIN
     Indication: Breast cancer metastatic
     Dates: start: 202112, end: 202404
  9. EXEMESTANE [Suspect]
     Active Substance: EXEMESTANE
     Indication: HER2 positive breast cancer
     Dates: start: 202112, end: 202404
  10. EXEMESTANE [Suspect]
     Active Substance: EXEMESTANE
     Indication: Breast cancer metastatic
     Dates: start: 202112, end: 202404
  11. PACLITAXEL [Suspect]
     Active Substance: PACLITAXEL
     Indication: HER2 positive breast cancer
     Dosage: 6 CYCLES, ALBUMIN BOUND
     Dates: start: 202112, end: 202404
  12. PACLITAXEL [Suspect]
     Active Substance: PACLITAXEL
     Indication: Breast cancer metastatic
     Dosage: 6 CYCLES, ALBUMIN BOUND
     Dates: start: 202112, end: 202404
  13. FULVESTRANT [Suspect]
     Active Substance: FULVESTRANT
     Indication: HER2 positive breast cancer
     Dates: start: 202112, end: 202404
  14. FULVESTRANT [Suspect]
     Active Substance: FULVESTRANT
     Indication: Breast cancer metastatic
     Dates: start: 202112, end: 202404
  15. CARBOPLATIN [Suspect]
     Active Substance: CARBOPLATIN
     Indication: HER2 positive breast cancer
     Dosage: 6 CYCLES
     Dates: start: 202112, end: 202404
  16. CARBOPLATIN [Suspect]
     Active Substance: CARBOPLATIN
     Indication: Breast cancer metastatic
     Dosage: 6 CYCLES
     Dates: start: 202112, end: 202404
  17. CAPECITABINE [Suspect]
     Active Substance: CAPECITABINE
     Indication: HER2 positive breast cancer
     Dosage: MAINTENANCE THERAPY
     Dates: start: 202112, end: 202404
  18. CAPECITABINE [Suspect]
     Active Substance: CAPECITABINE
     Indication: Breast cancer metastatic
     Dosage: MAINTENANCE THERAPY
     Dates: start: 202112, end: 202404
  19. GOSERELIN [Suspect]
     Active Substance: GOSERELIN
     Indication: Metastases to lymph nodes
     Dates: start: 202112, end: 202404
  20. EXEMESTANE [Suspect]
     Active Substance: EXEMESTANE
     Indication: Metastases to lymph nodes
     Dates: start: 202112, end: 202404
  21. PACLITAXEL [Suspect]
     Active Substance: PACLITAXEL
     Indication: Metastases to lymph nodes
     Dosage: 6 CYCLES, ALBUMIN BOUND
     Dates: start: 202112, end: 202404
  22. FULVESTRANT [Suspect]
     Active Substance: FULVESTRANT
     Indication: Metastases to lymph nodes
     Dates: start: 202112, end: 202404
  23. CARBOPLATIN [Suspect]
     Active Substance: CARBOPLATIN
     Indication: Metastases to lymph nodes
     Dosage: 6 CYCLES
     Dates: start: 202112, end: 202404
  24. CAPECITABINE [Suspect]
     Active Substance: CAPECITABINE
     Indication: Metastases to lymph nodes
     Dosage: MAINTENANCE THERAPY
     Dates: start: 202112, end: 202404
  25. PACLITAXEL [Suspect]
     Active Substance: PACLITAXEL
     Indication: Hormone receptor positive breast cancer
     Dosage: 8 CYCLES, LIPOSOMAL
     Dates: start: 202112, end: 202404

REACTIONS (1)
  - Myelosuppression [Unknown]
